FAERS Safety Report 9848135 (Version 1)
Quarter: 2013Q4

REPORT INFORMATION
  Report Type: Spontaneous
  Country: US (occurrence: None)
  Receive Date: 20131224
  Receipt Date: 20131224
  Transmission Date: 20140711
  Serious: Yes (Other)
  Sender: FDA-Public Use
  Company Number: PHEH2013US018542

PATIENT
  Age: 68 Year
  Sex: Female

DRUGS (2)
  1. AFINITOR (RAD) TABLET, 10MG [Suspect]
     Indication: BREAST CANCER
     Route: 048
     Dates: start: 20130814, end: 20130828
  2. EXEMESTANE [Suspect]
     Indication: BREAST CANCER

REACTIONS (1)
  - Neutropenia [None]
